FAERS Safety Report 26179393 (Version 1)
Quarter: 2025Q4

REPORT INFORMATION
  Report Type: Spontaneous
  Country: US (occurrence: None)
  Receive Date: 20251218
  Receipt Date: 20251218
  Transmission Date: 20260117
  Serious: No
  Sender: FDA-CTU
  Company Number: None

PATIENT
  Age: 51 Year
  Sex: Female

DRUGS (1)
  1. TOLVAPTAN [Suspect]
     Active Substance: TOLVAPTAN
     Indication: Congenital cystic kidney disease
     Dosage: 90MG/ 30MG BID ORAL
     Route: 048
     Dates: start: 20250909

REACTIONS (3)
  - Blood creatinine increased [None]
  - Glomerular filtration rate decreased [None]
  - Therapy interrupted [None]

NARRATIVE: CASE EVENT DATE: 20251201
